FAERS Safety Report 6356777-1 (Version None)
Quarter: 2009Q3

REPORT INFORMATION
  Report Type: 
  Country: None (occurrence: None)
  Receive Date: 20090911
  Receipt Date: 20090911
  Transmission Date: 20100115
  Serious: Yes (Other)
  Sender: FDA-Public Use
  Company Number: None

PATIENT
  Age: 41 Year
  Sex: Female
  Weight: 122.47 kg

DRUGS (1)
  1. VENOFER [Suspect]
     Indication: IRON DEFICIENCY ANAEMIA
     Dosage: 200MG Q 48 HOURS IV
     Route: 042
     Dates: start: 20090826

REACTIONS (3)
  - INFUSION RELATED REACTION [None]
  - PRURITUS GENERALISED [None]
  - THROAT TIGHTNESS [None]
